FAERS Safety Report 7000771-4 (Version None)
Quarter: 2010Q3

REPORT INFORMATION
  Report Type: 
  Country: None (occurrence: None)
  Receive Date: 20100920
  Receipt Date: 20100503
  Transmission Date: 20110219
  Serious: Yes (Hospitalization, Other)
  Sender: FDA-Public Use
  Company Number: US-ASTRAZENECA-2007UW05469

PATIENT
  Age: 18836 Day
  Sex: Male
  Weight: 126.1 kg

DRUGS (12)
  1. SEROQUEL [Suspect]
     Indication: BIPOLAR DISORDER
     Dosage: STRENGTH 25MG, 100MG, 200MG, 300MG DOSE 50MG-800MG
     Route: 048
     Dates: start: 20011127
  2. SEROQUEL [Suspect]
     Indication: DEPRESSION
     Dosage: STRENGTH 25MG, 100MG, 200MG, 300MG DOSE 50MG-800MG
     Route: 048
     Dates: start: 20011127
  3. SEROQUEL [Suspect]
     Route: 048
     Dates: start: 20020101, end: 20050101
  4. SEROQUEL [Suspect]
     Route: 048
     Dates: start: 20020101, end: 20050101
  5. RISPERDAL [Suspect]
     Dates: start: 19960101
  6. RISPERDAL [Suspect]
     Route: 048
     Dates: start: 20000724
  7. EFFEXOR XR [Concomitant]
     Indication: BIPOLAR DISORDER
     Dosage: STRENGTH 25MG, 150MG DOSE 75MG-300MG
     Route: 048
     Dates: start: 20020923
  8. TRILEPTAL [Concomitant]
     Route: 048
     Dates: start: 20020923
  9. SINGULAIR [Concomitant]
     Route: 048
     Dates: start: 20030827
  10. ATIVAN [Concomitant]
     Indication: ANXIETY
     Route: 048
     Dates: start: 20020923
  11. HYZAAR/COZAAR [Concomitant]
     Indication: BLOOD PRESSURE
     Route: 048
  12. ABILIFY [Concomitant]
     Dates: start: 20050701, end: 20070101

REACTIONS (3)
  - DIABETES MELLITUS INADEQUATE CONTROL [None]
  - DIABETIC KETOACIDOSIS [None]
  - TYPE 2 DIABETES MELLITUS [None]
